FAERS Safety Report 5456392-8 (Version None)
Quarter: 2007Q3

REPORT INFORMATION
  Report Type: 
  Country: None (occurrence: None)
  Receive Date: 20070918
  Receipt Date: 20070910
  Transmission Date: 20080115
  Serious: Yes (Other)
  Sender: FDA-Public Use
  Company Number: AU-ASTRAZENECA-2007AP05649

PATIENT
  Sex: Female

DRUGS (4)
  1. ATACAND [Suspect]
     Indication: HYPERTENSION
     Route: 048
     Dates: start: 20070810
  2. PANTOPRAZOLE SODIUM [Concomitant]
     Dates: start: 20070101
  3. ACARDIA [Concomitant]
  4. PRAVACHOL [Concomitant]

REACTIONS (2)
  - CARDIAC FIBRILLATION [None]
  - PALPITATIONS [None]
